FAERS Safety Report 5875923-7 (Version None)
Quarter: 2008Q3

REPORT INFORMATION
  Report Type: 
  Country: None (occurrence: None)
  Receive Date: 20080910
  Receipt Date: 20080904
  Transmission Date: 20090109
  Serious: Yes (Other)
  Sender: FDA-Public Use
  Company Number: GB-JNJFOC-20070505988

PATIENT
  Sex: Female

DRUGS (13)
  1. CONCERTA [Suspect]
     Indication: ABNORMAL BEHAVIOUR
     Route: 048
  2. DULOXETINE [Suspect]
     Route: 048
  3. DULOXETINE [Suspect]
     Indication: DRUG USE FOR UNKNOWN INDICATION
     Route: 048
  4. ALBUTEROL SPIROS [Concomitant]
     Indication: DRUG USE FOR UNKNOWN INDICATION
     Dosage: 2 PUFFS 4 TIMES A DAY.
  5. BECLOMETHASONE DIPROPIONATE [Concomitant]
     Indication: DRUG USE FOR UNKNOWN INDICATION
     Dosage: 2PUFFS TWICE A DAYS
  6. IBUPROFEN [Concomitant]
     Indication: DRUG USE FOR UNKNOWN INDICATION
     Route: 048
  7. ACETAMINOPHEN [Concomitant]
     Indication: DRUG USE FOR UNKNOWN INDICATION
     Route: 048
  8. CODEINE PHOSPHATE [Concomitant]
     Indication: DRUG USE FOR UNKNOWN INDICATION
     Dosage: 30-60MG 4TIMES PER DAY.
     Route: 048
  9. ENOXAPARIN SODIUM [Concomitant]
     Indication: DRUG USE FOR UNKNOWN INDICATION
     Dosage: 40 MG PER 0.4 ML PREFILLED SYRINGE, CONTAINING 20 PREFILLED SYRINGES AT A DOSE OF ONE PER DAY.
     Route: 050
  10. PEPTAC [Concomitant]
     Indication: DRUG USE FOR UNKNOWN INDICATION
     Dosage: SINGLE PRESCRIPTION ISSUED ON 08-OCT-2007 FOR 500 ML - DOSE 10-20 ML AT NIGHT.
  11. MOVICOL [Concomitant]
     Indication: CONSTIPATION
     Dosage: SINGLE PRESCRIPTION ISSUED ON 10-SEP-2007 X 60 SACHETS FOR CONSTIPATION.
  12. NICOTINE [Concomitant]
     Indication: DRUG USE FOR UNKNOWN INDICATION
     Dosage: SINGLE PRESCRIPTION ISSUED ON 15-AUG-2007 CONTAINING 28 PATCHES.
     Route: 062
  13. ORAMORPH SR [Concomitant]
     Indication: DRUG USE FOR UNKNOWN INDICATION
     Dosage: 10MG PER 5ML,PRESCRIPTION ISSUED ON 30-NOV-07 FOR 200ML.ADVISED TO TAKE 2.5ML TO 5ML 4TIMES A DAY.

REACTIONS (4)
  - ARTHRALGIA [None]
  - CONSTIPATION [None]
  - DRUG EXPOSURE DURING PREGNANCY [None]
  - PREMATURE BABY [None]
